FAERS Safety Report 7124590-3 (Version None)
Quarter: 2010Q4

REPORT INFORMATION
  Report Type: 
  Country: None (occurrence: None)
  Receive Date: 20101122
  Receipt Date: 20101122
  Transmission Date: 20110411
  Serious: No
  Sender: FDA-Public Use
  Company Number: None

PATIENT
  Age: 47 Year
  Sex: Male
  Weight: 68.0396 kg

DRUGS (1)
  1. HYDROCODONE BITARTRATE AND ACETAMINOPHEN [Suspect]
     Indication: PAIN MANAGEMENT
     Dosage: 120 QID PO
     Route: 048
     Dates: start: 20080310, end: 20101119

REACTIONS (2)
  - PRODUCT QUALITY ISSUE [None]
  - TABLET ISSUE [None]
